FAERS Safety Report 7030575-8 (Version None)
Quarter: 2010Q4

REPORT INFORMATION
  Report Type: 
  Country: None (occurrence: None)
  Receive Date: 20101006
  Receipt Date: 20100927
  Transmission Date: 20110411
  Serious: Yes (Hospitalization)
  Sender: FDA-Public Use
  Company Number: AT-ROCHE-726676

PATIENT
  Sex: Male
  Weight: 76 kg

DRUGS (6)
  1. BEVACIZUMAB [Suspect]
     Dosage: 5 MG/KG, 28 DAY APPLICATION
     Route: 065
     Dates: start: 20091228, end: 20100208
  2. FLUOROURACIL [Suspect]
     Indication: COLON CANCER
     Dosage: DAY 1 AND DAY 15, 28 DAY APPLICATION
     Route: 042
     Dates: start: 20091228, end: 20100222
  3. FLUOROURACIL [Suspect]
     Dosage: BOLUS, 28 DAY APPLICATION
     Route: 042
     Dates: start: 20091228, end: 20100222
  4. LEUCOVORIN CALCIUM [Suspect]
     Indication: COLON CANCER
     Dosage: DAY 1, 2, 15, 16, 28 DAY APPLICATION
     Route: 042
     Dates: start: 20091228, end: 20100222
  5. OXALIPLATIN [Suspect]
     Indication: COLON CANCER
     Dosage: DAY 1, 2, 15, 16, 28 DAY APPLICATION
     Route: 042
     Dates: start: 20091228, end: 20100222
  6. NAVOBAN [Concomitant]
     Route: 042
     Dates: start: 20091228, end: 20100222

REACTIONS (9)
  - ASTHENIA [None]
  - DECREASED APPETITE [None]
  - DIARRHOEA [None]
  - DRY MOUTH [None]
  - HAEMATOTOXICITY [None]
  - LEUKOPENIA [None]
  - MUCOSAL INFLAMMATION [None]
  - NAUSEA [None]
  - VOMITING [None]
